FAERS Safety Report 26216648 (Version 1)
Quarter: 2025Q4

REPORT INFORMATION
  Report Type: Spontaneous
  Country: GB (occurrence: GB)
  Receive Date: 20251231
  Receipt Date: 20251231
  Transmission Date: 20260118
  Serious: Yes (Other)
  Sender: AUROBINDO
  Company Number: GB-AUROBINDO-AUR-APL-2015-10140

PATIENT
  Age: 77 Year
  Sex: Male
  Weight: 85.27 kg

DRUGS (3)
  1. PRAVASTATIN [Interacting]
     Active Substance: PRAVASTATIN
     Indication: Atrial fibrillation
     Dosage: 10 MG, UNK
     Route: 061
  2. WARFARIN [Interacting]
     Active Substance: WARFARIN
     Indication: International normalised ratio increased
     Dosage: UNK
     Route: 065
  3. BISOPROLOL [Concomitant]
     Active Substance: BISOPROLOL
     Indication: Product used for unknown indication
     Dosage: 2.5 MG, UNK
     Route: 065

REACTIONS (6)
  - Arthralgia [Unknown]
  - Myalgia [Unknown]
  - International normalised ratio increased [Unknown]
  - Pain in extremity [Unknown]
  - Drug interaction [Unknown]
  - Product substitution issue [Unknown]
